FAERS Safety Report 7005254-3 (Version None)
Quarter: 2010Q3

REPORT INFORMATION
  Report Type: 
  Country: None (occurrence: None)
  Receive Date: 20100921
  Receipt Date: 20100910
  Transmission Date: 20110219
  Serious: Yes (Other)
  Sender: FDA-Public Use
  Company Number: PHHY2010FR60206

PATIENT
  Age: 8 Year
  Sex: Male

DRUGS (1)
  1. RITALIN [Suspect]
     Dosage: 20 MG DAILY

REACTIONS (3)
  - DRUG DOSE OMISSION [None]
  - GAIT DISTURBANCE [None]
  - OSTEONECROSIS [None]
